FAERS Safety Report 26046132 (Version 1)
Quarter: 2025Q4

REPORT INFORMATION
  Report Type: Report from Study
  Country: JP (occurrence: JP)
  Receive Date: 20251114
  Receipt Date: 20251114
  Transmission Date: 20260118
  Serious: Yes (Hospitalization)
  Sender: ROCHE
  Company Number: JP-CHUGAI-2025008099

PATIENT
  Age: 76 Year
  Sex: Male
  Weight: 62.4 kg

DRUGS (10)
  1. PIASKY [Suspect]
     Active Substance: CROVALIMAB-AKKZ
     Indication: Paroxysmal nocturnal haemoglobinuria
     Route: 042
     Dates: start: 20250109, end: 20250109
  2. PIASKY [Suspect]
     Active Substance: CROVALIMAB-AKKZ
     Route: 058
     Dates: start: 20250116, end: 20250116
  3. PIASKY [Suspect]
     Active Substance: CROVALIMAB-AKKZ
     Dosage: 1000 MILLIGRAM
     Route: 058
     Dates: start: 20250110, end: 20250110
  4. PIASKY [Suspect]
     Active Substance: CROVALIMAB-AKKZ
     Route: 058
     Dates: start: 20250123, end: 20250123
  5. PIASKY [Suspect]
     Active Substance: CROVALIMAB-AKKZ
     Route: 058
     Dates: start: 20250130, end: 20250130
  6. PIASKY [Suspect]
     Active Substance: CROVALIMAB-AKKZ
     Route: 042
     Dates: start: 20250206, end: 20250206
  7. PIASKY [Suspect]
     Active Substance: CROVALIMAB-AKKZ
     Route: 042
     Dates: start: 20250307, end: 20250307
  8. PIASKY [Suspect]
     Active Substance: CROVALIMAB-AKKZ
     Route: 058
     Dates: start: 20250403, end: 20250403
  9. ELIQUIS [Concomitant]
     Active Substance: APIXABAN
  10. BISOPROLOL FUMARATE [Concomitant]
     Active Substance: BISOPROLOL FUMARATE
     Route: 048

REACTIONS (4)
  - Pneumonia [Recovered/Resolved]
  - Breakthrough haemolysis [Recovered/Resolved]
  - Bacterial infection [Recovered/Resolved]
  - Off label use [Unknown]

NARRATIVE: CASE EVENT DATE: 20250301
